FAERS Safety Report 19130149 (Version 12)
Quarter: 2021Q2

REPORT INFORMATION
  Report Type: Report from Study
  Country: None (occurrence: ES)
  Receive Date: 20210414
  Receipt Date: 20210507
  Transmission Date: 20210717
  Serious: Yes (Hospitalization, Other)
  Sender: FDA-Public Use
  Company Number: ES-ABBVIE-21K-144-3852289-00

PATIENT
  Age: 73 Year
  Sex: Female

DRUGS (3)
  1. DUODOPA [Suspect]
     Active Substance: CARBIDOPA\LEVODOPA
     Indication: PARKINSON^S DISEASE
     Route: 050
     Dates: start: 20210406, end: 202104
  2. DUODOPA [Suspect]
     Active Substance: CARBIDOPA\LEVODOPA
     Route: 050
     Dates: start: 20210426, end: 202104
  3. DUODOPA [Suspect]
     Active Substance: CARBIDOPA\LEVODOPA
     Dosage: MD INCREASED TO 12 ML, CD INCREASED TO 3.2 ML AND ED INCREASED TO 2.5 ML
     Route: 050
     Dates: start: 202104

REACTIONS (16)
  - Encapsulating peritoneal sclerosis [Not Recovered/Not Resolved]
  - Arthralgia [Unknown]
  - Blood iron decreased [Unknown]
  - Abdominal distension [Recovering/Resolving]
  - Oxygen saturation decreased [Not Recovered/Not Resolved]
  - Pneumonia [Not Recovered/Not Resolved]
  - Malnutrition [Recovering/Resolving]
  - Abdominal pain [Recovered/Resolved]
  - On and off phenomenon [Recovering/Resolving]
  - Protein total decreased [Unknown]
  - Device placement issue [Unknown]
  - Abdominal abscess [Recovering/Resolving]
  - Pulmonary oedema [Unknown]
  - Confusional state [Not Recovered/Not Resolved]
  - Constipation [Recovering/Resolving]
  - Stoma site erythema [Recovering/Resolving]

NARRATIVE: CASE EVENT DATE: 2021
